FAERS Safety Report 7589666-5 (Version None)
Quarter: 2011Q3

REPORT INFORMATION
  Report Type: 
  Country: None (occurrence: None)
  Receive Date: 20110705
  Receipt Date: 20110621
  Transmission Date: 20111222
  Serious: Yes (Other)
  Sender: FDA-Public Use
  Company Number: US-BAYER-2011-053925

PATIENT
  Sex: Female

DRUGS (1)
  1. MIRENA [Suspect]
     Indication: CONTRACEPTION
     Dosage: UNK
     Route: 015
     Dates: start: 20100301

REACTIONS (5)
  - MUSCULOSKELETAL DISCOMFORT [None]
  - NECK PAIN [None]
  - HYPOAESTHESIA [None]
  - HEMIPLEGIC MIGRAINE [None]
  - DIZZINESS [None]
